FAERS Safety Report 4273239-6 (Version None)
Quarter: 2004Q1

REPORT INFORMATION
  Report Type: 
  Country: None (occurrence: None)
  Receive Date: 20040116
  Receipt Date: 20030814
  Transmission Date: 20041129
  Serious: Yes (Other)
  Sender: FDA-Public Use
  Company Number: US-ROCHE-344827

PATIENT
  Age: 22 Year
  Sex: Female
  Weight: 59 kg

DRUGS (5)
  1. ACCUTANE [Suspect]
     Indication: ACNE
     Route: 048
     Dates: start: 20030715, end: 20031016
  2. SEREVENT [Concomitant]
     Indication: ASTHMA
     Route: 055
  3. AZMACORT [Concomitant]
     Indication: ASTHMA
     Route: 055
  4. ZOLOFT [Concomitant]
     Indication: ANXIETY
     Route: 048
  5. ALESSE [Concomitant]
     Route: 048

REACTIONS (1)
  - VERTIGO [None]
